FAERS Safety Report 5524632-2 (Version None)
Quarter: 2007Q4

REPORT INFORMATION
  Report Type: 
  Country: None (occurrence: None)
  Receive Date: 20071123
  Receipt Date: 20071115
  Transmission Date: 20080405
  Serious: Yes (Hospitalization)
  Sender: FDA-Public Use
  Company Number: US-SHR-US-2007-030834

PATIENT
  Age: 48 Year
  Sex: Female
  Weight: 95.238 kg

DRUGS (12)
  1. BETASERON [Suspect]
     Indication: RELAPSING-REMITTING MULTIPLE SCLEROSIS
     Dosage: 16 MIU, EVERY 2D
     Route: 058
     Dates: start: 19991111
  2. CITALOPRAM HDR [Concomitant]
     Dosage: 20 MG, 1X/DAY
  3. LISINOPRIL AND HYDROCHLOROTHIAZIDE [Concomitant]
     Dosage: 20/25 MG, 1X/DAY
  4. PREMARIN [Concomitant]
     Dosage: .3 MG, 1X/DAY
  5. METOPROLOL [Concomitant]
     Dosage: 100 MG, 1X/DAY
  6. HYDROCODONE W/APAP [Concomitant]
     Dosage: 10MG/500MG, 3X/DAY
  7. LYRICA [Concomitant]
     Dosage: 200 MG, 3X/DAY
  8. TRILEPTAL [Concomitant]
     Dosage: 600 MG, 3X/DAY
  9. NABUMETONE [Concomitant]
     Dosage: 500 MG, 3X/DAY
  10. TYLENOL [Concomitant]
     Dosage: 2 TAB(S), UNK
  11. TYLENOL [Concomitant]
     Dosage: 1 TAB(S), AS REQ'D
  12. BENADRYL [Concomitant]
     Indication: SLEEP DISORDER

REACTIONS (8)
  - INJECTION SITE ERYTHEMA [None]
  - INJECTION SITE IRRITATION [None]
  - INJECTION SITE PAIN [None]
  - INJECTION SITE RASH [None]
  - INSOMNIA [None]
  - MULTIPLE SCLEROSIS [None]
  - NEURALGIA [None]
  - OFF LABEL USE [None]
